FAERS Safety Report 25910902 (Version 5)
Quarter: 2025Q4

REPORT INFORMATION
  Report Type: Spontaneous
  Country: EU (occurrence: EU)
  Receive Date: 20251013
  Receipt Date: 20251105
  Transmission Date: 20260117
  Serious: Yes (Hospitalization, Other)
  Sender: JOHNSON AND JOHNSON
  Company Number: None

PATIENT
  Age: 57 Year
  Sex: Male
  Weight: 75 kg

DRUGS (21)
  1. INFLIXIMAB [Suspect]
     Active Substance: INFLIXIMAB
     Indication: Crohn^s disease
     Dosage: 360 MILLIGRAM
     Route: 042
     Dates: start: 20140801
  2. ESOMEPRAZOLE [Suspect]
     Active Substance: ESOMEPRAZOLE
     Indication: Prophylaxis against gastrointestinal ulcer
     Dosage: 20 MILLIGRAM, QD
     Route: 048
  3. DAPAGLIFLOZIN [Suspect]
     Active Substance: DAPAGLIFLOZIN
     Indication: Type 2 diabetes mellitus
     Dosage: 10 MILLIGRAM, QD
  4. DAPAGLIFLOZIN [Suspect]
     Active Substance: DAPAGLIFLOZIN
     Route: 048
  5. TERBINAFINE [Suspect]
     Active Substance: TERBINAFINE
     Indication: Product used for unknown indication
     Dosage: 250 MILLIGRAM, QD
  6. TERBINAFINE [Suspect]
     Active Substance: TERBINAFINE
     Dosage: 250 MILLIGRAM, 1/DAY
  7. TERBINAFINE [Suspect]
     Active Substance: TERBINAFINE
     Dosage: 250 MILLIGRAM
     Route: 048
  8. METFORMIN [Suspect]
     Active Substance: METFORMIN HYDROCHLORIDE
     Indication: Type 2 diabetes mellitus
     Dosage: 2000 MILLIGRAM, QD
  9. METFORMIN [Suspect]
     Active Substance: METFORMIN HYDROCHLORIDE
     Dosage: 2000 MILLIGRAM, QD
  10. METFORMIN [Suspect]
     Active Substance: METFORMIN HYDROCHLORIDE
     Route: 048
  11. PERINDOPRIL [Suspect]
     Active Substance: PERINDOPRIL
     Indication: Hypertension
     Dosage: 4 MILLIGRAM, QD
  12. PERINDOPRIL [Suspect]
     Active Substance: PERINDOPRIL
     Dosage: 4 MILLIGRAM
  13. PERINDOPRIL [Suspect]
     Active Substance: PERINDOPRIL
     Dosage: 4 MILLIGRAM, 1/DAY
  14. SITAGLIPTIN [Suspect]
     Active Substance: SITAGLIPTIN
     Indication: Type 2 diabetes mellitus
     Dosage: 50 MILLIGRAM, QD
  15. SITAGLIPTIN [Suspect]
     Active Substance: SITAGLIPTIN
     Dosage: 50 MILLIGRAM
  16. AMLODIPINE [Suspect]
     Active Substance: AMLODIPINE BESYLATE
     Indication: Hypertension
     Dosage: 5 MILLIGRAM, QD
  17. AMLODIPINE [Suspect]
     Active Substance: AMLODIPINE BESYLATE
     Dosage: 5 MILLIGRAM
  18. AMLODIPINE [Suspect]
     Active Substance: AMLODIPINE BESYLATE
     Dosage: 5 MILLIGRAM, 1/DAY
  19. LOPERAMIDE HYDROCHLORIDE [Suspect]
     Active Substance: LOPERAMIDE HYDROCHLORIDE
     Indication: Diarrhoea
     Dosage: 12 MILLIGRAM, QD
     Route: 048
  20. ELIQUIS [Concomitant]
     Active Substance: APIXABAN
     Indication: Cardiovascular event prophylaxis
     Dosage: 2 DOSAGE FORM, QD
  21. ELIQUIS [Concomitant]
     Active Substance: APIXABAN
     Dosage: 2 DOSAGE FORM, 1/DAY

REACTIONS (1)
  - Ischaemic stroke [Recovering/Resolving]

NARRATIVE: CASE EVENT DATE: 20250823
